FAERS Safety Report 6154234-9 (Version None)
Quarter: 2009Q2

REPORT INFORMATION
  Report Type: 
  Country: None (occurrence: None)
  Receive Date: 20090414
  Receipt Date: 20090413
  Transmission Date: 20091009
  Serious: Yes (Hospitalization)
  Sender: FDA-Public Use
  Company Number: JP-B.I. PHARMACEUTICALS,INC./RIDGEFIELD-2008-BP-06591NB

PATIENT
  Sex: Male

DRUGS (4)
  1. MICARDIS [Suspect]
     Indication: HYPERTENSION
     Dosage: 40MG
     Route: 048
     Dates: start: 20060927
  2. BAYLOTENSIN [Concomitant]
     Indication: HYPERTENSION
     Dosage: 5MG
     Route: 048
  3. FLUITRAN [Concomitant]
     Indication: HYPERTENSION
     Dosage: 2MG
     Route: 048
  4. MEVALOTIN [Concomitant]
     Indication: HYPERLIPIDAEMIA
     Dosage: 5MG
     Route: 048

REACTIONS (1)
  - CEREBRAL INFARCTION [None]
